FAERS Safety Report 7753082-3 (Version None)
Quarter: 2011Q3

REPORT INFORMATION
  Report Type: 
  Country: None (occurrence: None)
  Receive Date: 20110915
  Receipt Date: 20110906
  Transmission Date: 20111222
  Serious: Yes (Other)
  Sender: FDA-Public Use
  Company Number: GB-JNJFOC-20110700090

PATIENT
  Sex: Female

DRUGS (1)
  1. TOPAMAX [Suspect]
     Indication: MIGRAINE PROPHYLAXIS
     Dosage: 2X 25 MG IN THE MORNING AND 2X 25 MG IN THE EVENING = 100 MG TOTAL DAILY DOSE
     Route: 048
     Dates: start: 20110524

REACTIONS (3)
  - DISORIENTATION [None]
  - MEMORY IMPAIRMENT [None]
  - DISTRACTIBILITY [None]
